FAERS Safety Report 6069077-4 (Version None)
Quarter: 2009Q1

REPORT INFORMATION
  Report Type: 
  Country: None (occurrence: None)
  Receive Date: 20090206
  Receipt Date: 20090123
  Transmission Date: 20090719
  Serious: Yes (Hospitalization)
  Sender: FDA-Public Use
  Company Number: US-ELI_LILLY_AND_COMPANY-US200901004048

PATIENT
  Sex: Female

DRUGS (10)
  1. FORTEO [Suspect]
     Indication: OSTEOPOROSIS
     Dosage: 20 UG, DAILY (1/D)
     Route: 058
  2. CENTRUM SILVER [Concomitant]
  3. LAMICTAL [Concomitant]
     Dosage: UNK, DAILY (1/D)
  4. PROTONIX [Concomitant]
     Dosage: 40 MG, DAILY (1/D)
  5. TYLENOL /USA/ [Concomitant]
     Dosage: UNK, AS NEEDED
  6. ROBITUSSIN [Concomitant]
     Dosage: UNK, AS NEEDED
  7. DEPAKOTE [Concomitant]
     Dosage: 1000 MG, 2/D
  8. OSCAL [Concomitant]
     Dosage: 500 MG, 2/D
  9. POTASSIUM CHLORIDE [Concomitant]
     Dosage: 10 MEQ, 2/D
  10. DARVOCET-N 100 [Concomitant]
     Dosage: UNK, AS NEEDED

REACTIONS (2)
  - FALL [None]
  - MEDICATION ERROR [None]
